FAERS Safety Report 4548207-7 (Version None)
Quarter: 2004Q4

REPORT INFORMATION
  Report Type: 
  Country: None (occurrence: None)
  Receive Date: 20041227
  Receipt Date: 20040930
  Transmission Date: 20050328
  Serious: No
  Sender: FDA-Public Use
  Company Number: 04P-163-0275376-00

PATIENT
  Age: 67 Year
  Sex: Female
  Weight: 68.0396 kg

DRUGS (14)
  1. HUMIRA [Suspect]
     Indication: RHEUMATOID ARTHRITIS
     Dosage: 40 MG, 1 IN 2 WK, SUBCUTANEOUS
     Route: 057
     Dates: start: 20040101, end: 20040401
  2. HUMIRA [Suspect]
     Indication: RHEUMATOID ARTHRITIS
     Dosage: 40 MG, 1 IN 2 WK, SUBCUTANEOUS
     Route: 057
     Dates: start: 20040601
  3. LEVOTHYROXINE SODIUM [Concomitant]
  4. AMLODIPINE BESYLATE [Concomitant]
  5. IRBESARTAN [Concomitant]
  6. RABEPRAZOLE SODIUM [Concomitant]
  7. RISEDRONATE SODIUM [Concomitant]
  8. ESTRACE [Concomitant]
  9. METOPROLOL SUCCINATE [Concomitant]
  10. IBUPROFEN [Concomitant]
  11. MONTELUKAST SODIUM [Concomitant]
  12. MULTIVITAMIN [Concomitant]
  13. CALCIUM CARBONATE [Concomitant]
  14. TOCOPHEROL CONCENTRATE CAP [Concomitant]

REACTIONS (1)
  - LYMPHADENOPATHY [None]
